FAERS Safety Report 4970809-4 (Version None)
Quarter: 2006Q2

REPORT INFORMATION
  Report Type: 
  Country: None (occurrence: None)
  Receive Date: 20060412
  Receipt Date: 20060405
  Transmission Date: 20061013
  Serious: Yes (Hospitalization)
  Sender: FDA-Public Use
  Company Number: ES-ROCHE-443062

PATIENT
  Age: 44 Year
  Sex: Male

DRUGS (5)
  1. MYCOPHENOLATE MOFETIL [Suspect]
     Indication: RENAL AND PANCREAS TRANSPLANT REJECTION
     Route: 048
     Dates: start: 20040928
  2. TACROLIMUS [Suspect]
     Indication: RENAL AND PANCREAS TRANSPLANT REJECTION
     Route: 048
     Dates: start: 20040929, end: 20050831
  3. TACROLIMUS [Suspect]
     Route: 048
     Dates: start: 20050901
  4. CORTICOSTEROIDS [Concomitant]
     Dates: end: 20041111
  5. ACETYLSALICYLIC ACID SRT [Concomitant]

REACTIONS (1)
  - RENAL IMPAIRMENT [None]
